FAERS Safety Report 8852712 (Version 2)
Quarter: 2012Q4

REPORT INFORMATION
  Report Type: 
  Country: ES (occurrence: ES)
  Receive Date: 20121022
  Receipt Date: 20121031
  Transmission Date: 20130627
  Serious: Yes (Other)
  Sender: FDA-Public Use
  Company Number: ES-B.I. PHARMACEUTICALS,INC./RIDGEFIELD-2012-EU-05243GD

PATIENT
  Age: 62 Year
  Sex: Female

DRUGS (4)
  1. IPRATROPIUM BROMIDE [Suspect]
     Indication: H1N1 INFLUENZA
  2. BUDESONIDE [Suspect]
     Indication: H1N1 INFLUENZA
  3. OSELTAMIVIR [Suspect]
     Indication: H1N1 INFLUENZA
     Route: 048
  4. TERBUTALINE [Suspect]
     Indication: H1N1 INFLUENZA

REACTIONS (8)
  - Disorientation [Recovered/Resolved]
  - Nervousness [Recovered/Resolved]
  - Psychomotor hyperactivity [Recovered/Resolved]
  - Abnormal behaviour [Recovered/Resolved]
  - Memory impairment [Recovered/Resolved]
  - Logorrhoea [Recovered/Resolved]
  - Delirium [Recovered/Resolved]
  - Flat affect [Not Recovered/Not Resolved]
